FAERS Safety Report 4580188-2 (Version None)
Quarter: 2005Q1

REPORT INFORMATION
  Report Type: 
  Country: None (occurrence: None)
  Receive Date: 20050211
  Receipt Date: 20040331
  Transmission Date: 20050727
  Serious: Yes (Hospitalization)
  Sender: FDA-Public Use
  Company Number: GXKR2004US00698

PATIENT
  Age: 71 Year
  Sex: Female

DRUGS (1)
  1. ALPRAZOLAM (NGX) (ALPRAZOLAM) [Suspect]
     Dosage: 6 MG, ORAL
     Route: 048

REACTIONS (9)
  - ACCIDENTAL OVERDOSE [None]
  - DRUG TOXICITY [None]
  - GAIT DISTURBANCE [None]
  - HYPERTONIA [None]
  - HYPOXIC ENCEPHALOPATHY [None]
  - INCONTINENCE [None]
  - LEUKOENCEPHALOPATHY [None]
  - LOSS OF CONSCIOUSNESS [None]
  - PNEUMONIA ASPIRATION [None]
